FAERS Safety Report 16666717 (Version 2)
Quarter: 2019Q3

REPORT INFORMATION
  Report Type: Spontaneous
  Country: US (occurrence: US)
  Receive Date: 20190805
  Receipt Date: 20190806
  Transmission Date: 20191004
  Serious: Yes (Other)
  Sender: FDA-Public Use
  Company Number: US-ACCORD-097308

PATIENT
  Age: 62 Year
  Sex: Female

DRUGS (16)
  1. DOCETAXEL ACCORD [Suspect]
     Active Substance: DOCETAXEL
     Indication: BREAST CANCER
     Dosage: NUMBER OF CYCLES: 06
     Dates: start: 20110623, end: 20111007
  2. PREMARIN [Concomitant]
     Active Substance: ESTROGENS, CONJUGATED
     Dates: start: 20100501, end: 20111231
  3. PARAPLATIN [Suspect]
     Active Substance: CARBOPLATIN
     Indication: BREAST CANCER
     Dates: start: 20110623, end: 20111007
  4. HERCEPTIN [Suspect]
     Active Substance: TRASTUZUMAB
     Indication: BREAST CANCER
     Dosage: IN COMBINATION TILL 07-OCT-2011 AND FROM 04-NOV-2011 TO 22-JUN-2012, HERCEPTIN ALONE
     Dates: start: 20110623, end: 20120622
  5. NEXIUM [Concomitant]
     Active Substance: ESOMEPRAZOLE MAGNESIUM
  6. PRILOSEC [Concomitant]
     Active Substance: OMEPRAZOLE MAGNESIUM
  7. NEULASTA [Concomitant]
     Active Substance: PEGFILGRASTIM
  8. MIRALAX [Concomitant]
     Active Substance: POLYETHYLENE GLYCOL 3350
  9. PROMETRIUM [Concomitant]
     Active Substance: PROGESTERONE
     Dates: start: 20050101, end: 20111231
  10. VICODIN [Concomitant]
     Active Substance: ACETAMINOPHEN\HYDROCODONE BITARTRATE
  11. LORAZEPAM. [Concomitant]
     Active Substance: LORAZEPAM
  12. ALOXI [Concomitant]
     Active Substance: PALONOSETRON HYDROCHLORIDE
  13. CARAFATE [Concomitant]
     Active Substance: SUCRALFATE
  14. EMEND [Concomitant]
     Active Substance: APREPITANT
  15. COMPAZINE [Concomitant]
     Active Substance: PROCHLORPERAZINE MALEATE
  16. DECADRON [Concomitant]
     Active Substance: DEXAMETHASONE

REACTIONS (1)
  - Alopecia [Not Recovered/Not Resolved]

NARRATIVE: CASE EVENT DATE: 20120401
